FAERS Safety Report 15299425 (Version 2)
Quarter: 2018Q3

REPORT INFORMATION
  Report Type: Spontaneous
  Country: US (occurrence: US)
  Receive Date: 20180821
  Receipt Date: 20180924
  Transmission Date: 20181010
  Serious: Yes (Hospitalization, Other)
  Sender: FDA-Public Use
  Company Number: PHEH2018US032688

PATIENT
  Age: 17 Year
  Sex: Male
  Weight: 59.7 kg

DRUGS (1)
  1. KYMRIAH [Suspect]
     Active Substance: TISAGENLECLEUCEL
     Indication: ACUTE LYMPHOCYTIC LEUKAEMIA RECURRENT
     Dosage: 0.5X 10^8 CART POSITIVE CELLS
     Route: 042
     Dates: start: 20180705

REACTIONS (12)
  - Pyrexia [Recovered/Resolved]
  - Cytokine release syndrome [Recovered/Resolved]
  - Hepatic enzyme increased [Recovered/Resolved]
  - Headache [Recovered/Resolved]
  - Clostridium difficile infection [Recovered/Resolved]
  - Blood fibrinogen increased [Unknown]
  - C-reactive protein increased [Recovered/Resolved]
  - Neutropenia [Unknown]
  - Hypotension [Recovered/Resolved]
  - Serum ferritin increased [Recovered/Resolved]
  - Fibrin D dimer increased [Recovered/Resolved]
  - Paraesthesia [Recovered/Resolved]

NARRATIVE: CASE EVENT DATE: 20180713
